FAERS Safety Report 15018071 (Version 1)
Quarter: 2018Q2

REPORT INFORMATION
  Report Type: Report from Study
  Country: CN (occurrence: CN)
  Receive Date: 20180615
  Receipt Date: 20180615
  Transmission Date: 20180711
  Serious: Yes (Other)
  Sender: FDA-Public Use
  Company Number: CN-MYLANLABS-2018M1041247

PATIENT

DRUGS (6)
  1. SIROLIMUS. [Suspect]
     Active Substance: SIROLIMUS
     Indication: HAEMANGIOMA-THROMBOCYTOPENIA SYNDROME
     Dosage: 0.8 MG/M2
     Route: 048
  2. PINGYANGMYCIN [Suspect]
     Active Substance: BLEOMYCIN A5
     Indication: HAEMANGIOMA-THROMBOCYTOPENIA SYNDROME
     Route: 065
  3. DEXAMETHASONE. [Suspect]
     Active Substance: DEXAMETHASONE
     Indication: HAEMANGIOMA-THROMBOCYTOPENIA SYNDROME
     Dosage: 2 MG
     Route: 065
  4. ETHIODIZED OIL [Suspect]
     Active Substance: ETHIODIZED OIL
     Indication: HAEMANGIOMA-THROMBOCYTOPENIA SYNDROME
     Dosage: 2 ML
     Route: 065
  5. IOHEXOL [Suspect]
     Active Substance: IOHEXOL
     Indication: HAEMANGIOMA-THROMBOCYTOPENIA SYNDROME
     Dosage: IODINE CONTENT OF 300 MG/ML
     Route: 065
  6. ALCOHOL. [Suspect]
     Active Substance: ALCOHOL
     Indication: HAEMANGIOMA-THROMBOCYTOPENIA SYNDROME
     Route: 065

REACTIONS (1)
  - Tumour ulceration [Recovered/Resolved]
